FAERS Safety Report 9761240 (Version 2)
Quarter: 2014Q1

REPORT INFORMATION
  Report Type: Spontaneous
  Country: JP (occurrence: JP)
  Receive Date: 20131216
  Receipt Date: 20140214
  Transmission Date: 20141002
  Serious: Yes (Death)
  Sender: FDA-Public Use
  Company Number: JP-NAPPMUNDI-GBR-2013-0016568

PATIENT
  Age: 13 Year
  Sex: Male

DRUGS (1)
  1. OXYCODONE HYDROCHLORIDE [Suspect]
     Indication: PAIN
     Dosage: 180 MG, DAILY
     Route: 042
     Dates: start: 20130912, end: 20131129

REACTIONS (1)
  - Malignant neoplasm progression [Fatal]
